FAERS Safety Report 8806336 (Version 1)
Quarter: 2012Q4

REPORT INFORMATION
  Report Type: 
  Country: US (occurrence: US)
  Receive Date: 20120925
  Receipt Date: 20120925
  Transmission Date: 20130627
  Serious: Yes (Death)
  Sender: FDA-Public Use
  Company Number: SL-ASTELLAS-2012US007863

PATIENT
  Sex: Female

DRUGS (1)
  1. PROGRAF [Suspect]
     Indication: LUNG TRANSPLANT
     Dosage: 8.5 mg, bid
     Route: 048
     Dates: start: 20111215, end: 20120716

REACTIONS (3)
  - Off label use [Unknown]
  - Lung transplant rejection [Fatal]
  - Hospice care [Unknown]
